FAERS Safety Report 9053290 (Version 2)
Quarter: 2013Q1

REPORT INFORMATION
  Report Type: Spontaneous
  Country: CA (occurrence: CA)
  Receive Date: 20130207
  Receipt Date: 20130218
  Transmission Date: 20140127
  Serious: Yes (Other)
  Sender: FDA-Public Use
  Company Number: CA-AMGEN-CANSP2013006693

PATIENT
  Age: 84 Year
  Sex: Female
  Weight: 56.36 kg

DRUGS (1)
  1. PROLIA [Suspect]
     Indication: OSTEOPOROSIS POSTMENOPAUSAL
     Dosage: UNK
     Dates: start: 20120724

REACTIONS (3)
  - Intra-abdominal haemorrhage [Unknown]
  - Confusional state [Unknown]
  - Dementia [Unknown]
